FAERS Safety Report 7804743-9 (Version None)
Quarter: 2011Q4

REPORT INFORMATION
  Report Type: 
  Country: None (occurrence: None)
  Receive Date: 20111010
  Receipt Date: 20110929
  Transmission Date: 20120403
  Serious: Yes (Death)
  Sender: FDA-Public Use
  Company Number: US-ALEXION-A201101487

PATIENT
  Age: 18 Month
  Sex: Female

DRUGS (2)
  1. SOLIRIS [Suspect]
     Indication: HEART TRANSPLANT
     Dosage: 300 MG AND 300 MG WITHIN 1 HOUR OF PLASMAPHERESIS
     Route: 042
  2. SOLIRIS [Suspect]
     Indication: TRANSPLANT REJECTION

REACTIONS (2)
  - SUDDEN DEATH [None]
  - LUNG CONSOLIDATION [None]
